FAERS Safety Report 4526186-6 (Version None)
Quarter: 2004Q4

REPORT INFORMATION
  Report Type: 
  Country: None (occurrence: None)
  Receive Date: 20041210
  Receipt Date: 20041126
  Transmission Date: 20050328
  Serious: No
  Sender: FDA-Public Use
  Company Number: A01200405971

PATIENT
  Age: 3 Year
  Sex: Female

DRUGS (1)
  1. NALIDIXIC ACID [Suspect]
     Indication: URINARY TRACT INFECTION
     Dosage: 250 MG QID
     Route: 048
     Dates: start: 20041113, end: 20041122

REACTIONS (1)
  - FACIAL PALSY [None]
